FAERS Safety Report 4321990-1 (Version None)
Quarter: 2004Q1

REPORT INFORMATION
  Report Type: 
  Country: None (occurrence: None)
  Receive Date: 20040323
  Receipt Date: 20040312
  Transmission Date: 20041129
  Serious: Yes (Other)
  Sender: FDA-Public Use
  Company Number: PHBS2004BR03544

PATIENT
  Age: 42 Year
  Sex: Female

DRUGS (5)
  1. CYCLOSPORINE [Suspect]
     Indication: LIVER TRANSPLANT
     Dosage: 425 MG/DAY
     Route: 065
  2. PREDNISONE [Concomitant]
     Dosage: 5 MG/DAY
     Route: 065
  3. AZATHIOPRINE [Concomitant]
     Dosage: 100 MG/D
  4. ASPIRIN [Concomitant]
     Dosage: 100 MG/D
  5. HYDROXYUREA [Concomitant]

REACTIONS (4)
  - DRUG EXPOSURE DURING PREGNANCY [None]
  - HYPERTENSION [None]
  - NORMAL NEWBORN [None]
  - PLACENTAL INSUFFICIENCY [None]
